FAERS Safety Report 5588765-7 (Version None)
Quarter: 2008Q1

REPORT INFORMATION
  Report Type: 
  Country: None (occurrence: None)
  Receive Date: 20080111
  Receipt Date: 20080107
  Transmission Date: 20080703
  Serious: Yes (Hospitalization, Other)
  Sender: FDA-Public Use
  Company Number: B0425911A

PATIENT
  Age: 27 Year
  Sex: Male

DRUGS (4)
  1. CEFTAZIDIME SODIUM [Suspect]
     Indication: PSEUDOMONAS INFECTION
     Route: 042
     Dates: start: 20060101, end: 20060101
  2. FLOXACILLIN SODIUM [Suspect]
     Indication: PSEUDOMONAS INFECTION
     Route: 042
     Dates: start: 20060101, end: 20060101
  3. PULMOZYME [Concomitant]
     Dosage: 2.5MG PER DAY
     Route: 055
  4. COLISTIN SULFATE [Concomitant]
     Dosage: 160MG PER DAY
     Route: 055

REACTIONS (3)
  - CONVULSION [None]
  - ENCEPHALOPATHY [None]
  - OVERDOSE [None]
